FAERS Safety Report 21695478 (Version 1)
Quarter: 2022Q4

REPORT INFORMATION
  Report Type: Spontaneous
  Country: DE (occurrence: DE)
  Receive Date: 20221207
  Receipt Date: 20221207
  Transmission Date: 20230112
  Serious: Yes (Other)
  Sender: FDA-Public Use
  Company Number: DE-ABBVIE-4227267

PATIENT
  Age: 72 Year
  Sex: Male

DRUGS (1)
  1. HUMIRA [Suspect]
     Active Substance: ADALIMUMAB
     Indication: Product used for unknown indication
     Route: 058
     Dates: start: 2012

REACTIONS (5)
  - Deafness transitory [Unknown]
  - Anxiety [Unknown]
  - Back pain [Unknown]
  - Therapeutic product effect decreased [Unknown]
  - Alopecia [Unknown]
